FAERS Safety Report 13903743 (Version 2)
Quarter: 2017Q4

REPORT INFORMATION
  Report Type: Report from Study
  Country: US (occurrence: US)
  Receive Date: 20170824
  Receipt Date: 20171204
  Transmission Date: 20180320
  Serious: Yes (Hospitalization, Other)
  Sender: FDA-Public Use
  Company Number: US-ACTELION-A-US2017-158428

PATIENT
  Age: 73 Year
  Sex: Male

DRUGS (1)
  1. OPSUMIT [Suspect]
     Active Substance: MACITENTAN
     Indication: PULMONARY ARTERIAL HYPERTENSION
     Dosage: 10 MG, QD
     Route: 048
     Dates: start: 20170410

REACTIONS (2)
  - Cardiac disorder [Recovered/Resolved]
  - Haemorrhage [Recovered/Resolved]

NARRATIVE: CASE EVENT DATE: 20170724
